FAERS Safety Report 5317945-0 (Version None)
Quarter: 2007Q2

REPORT INFORMATION
  Report Type: 
  Country: None (occurrence: None)
  Receive Date: 20070504
  Receipt Date: 20070504
  Transmission Date: 20071010
  Serious: Yes (Hospitalization)
  Sender: FDA-Public Use
  Company Number: None

PATIENT
  Sex: Male
  Weight: 94.3482 kg

DRUGS (2)
  1. BUMETANIDE [Suspect]
     Dosage: 1 MG BID PO
     Route: 048
     Dates: start: 20060327, end: 20070320
  2. METOLAZONE [Suspect]
     Dosage: 2.5 MG 3 X / WK PO
     Route: 048
     Dates: start: 20060705, end: 20070320

REACTIONS (2)
  - BLOOD CREATININE INCREASED [None]
  - RENAL DISORDER [None]
